FAERS Safety Report 5958071-7 (Version None)
Quarter: 2008Q4

REPORT INFORMATION
  Report Type: 
  Country: None (occurrence: None)
  Receive Date: 20081119
  Receipt Date: 20081114
  Transmission Date: 20090506
  Serious: Yes (Death)
  Sender: FDA-Public Use
  Company Number: B0518453A

PATIENT
  Age: 59 Year
  Sex: Male

DRUGS (4)
  1. ALKERAN [Suspect]
     Indication: STEM CELL TRANSPLANT
     Route: 042
     Dates: start: 20051101
  2. ETOPOSIDE [Suspect]
     Indication: DRUG USE FOR UNKNOWN INDICATION
     Route: 065
     Dates: start: 20051101
  3. CYMERIN [Concomitant]
     Route: 042
     Dates: start: 20051101
  4. CYTARABINE [Concomitant]
     Route: 042
     Dates: start: 20051101

REACTIONS (2)
  - ACUTE MYELOID LEUKAEMIA [None]
  - DIFFUSE LARGE B-CELL LYMPHOMA [None]
